FAERS Safety Report 4273784-3 (Version None)
Quarter: 2004Q1

REPORT INFORMATION
  Report Type: 
  Country: None (occurrence: None)
  Receive Date: 20040114
  Receipt Date: 20031229
  Transmission Date: 20041129
  Serious: Yes (Congenital Anomaly)
  Sender: FDA-Public Use
  Company Number: 2004SE00066

PATIENT
  Age: 2 Day
  Sex: Male

DRUGS (1)
  1. AMIAS [Suspect]
     Dosage: 4 MG DAILY TPL

REACTIONS (5)
  - DRUG EXPOSURE DURING PREGNANCY [None]
  - MULTIPLE CONGENITAL ABNORMALITIES [None]
  - PERITONEAL DIALYSIS [None]
  - RENAL FAILURE NEONATAL [None]
  - RENAL VEIN THROMBOSIS [None]
